FAERS Safety Report 20150302 (Version 1)
Quarter: 2021Q4

REPORT INFORMATION
  Report Type: Spontaneous
  Country: HR (occurrence: HR)
  Receive Date: 20211206
  Receipt Date: 20211206
  Transmission Date: 20220303
  Serious: Yes (Hospitalization, Other)
  Sender: FDA-Public Use
  Company Number: HR-009507513-2112HRV000530

PATIENT
  Age: 61 Year
  Sex: Male

DRUGS (6)
  1. KEYTRUDA [Suspect]
     Active Substance: PEMBROLIZUMAB
     Dosage: 200 MILLIGRAM, CYCLICAL
     Dates: start: 20210706, end: 20210706
  2. KEYTRUDA [Suspect]
     Active Substance: PEMBROLIZUMAB
     Dosage: 200 MILLIGRAM, CYCLICAL
     Dates: start: 20210727, end: 20210727
  3. KEYTRUDA [Suspect]
     Active Substance: PEMBROLIZUMAB
     Dosage: 200 MILLIGRAM, CYCLICAL
     Dates: start: 20210817, end: 20210817
  4. KEYTRUDA [Suspect]
     Active Substance: PEMBROLIZUMAB
     Dosage: 200 MILLIGRAM, CYCLICAL
     Dates: start: 20210907, end: 20210907
  5. KEYTRUDA [Suspect]
     Active Substance: PEMBROLIZUMAB
     Dosage: 200 MILLIGRAM, CYCLICAL
     Dates: start: 20210928, end: 20210928
  6. AMIODARONE [Suspect]
     Active Substance: AMIODARONE

REACTIONS (22)
  - Pericardial effusion [Recovered/Resolved]
  - Cardiomegaly [Unknown]
  - Pulmonary fibrosis [Unknown]
  - Cardiac tamponade [Unknown]
  - Malignant neoplasm progression [Unknown]
  - Hyperdynamic left ventricle [Unknown]
  - Pain [Unknown]
  - Decreased appetite [Unknown]
  - Asthenia [Unknown]
  - Inferior vena cava dilatation [Unknown]
  - Sinus tachycardia [Not Recovered/Not Resolved]
  - Pericardial effusion [Recovered/Resolved]
  - Pleural effusion [Recovering/Resolving]
  - Phlebitis [Unknown]
  - Asthenia [Recovering/Resolving]
  - Arthralgia [Recovering/Resolving]
  - Back pain [Recovering/Resolving]
  - Nausea [Unknown]
  - Feeding disorder [Unknown]
  - Administration site extravasation [Unknown]
  - Patient isolation [Unknown]
  - Exposure to SARS-CoV-2 [Unknown]

NARRATIVE: CASE EVENT DATE: 20210101
